FAERS Safety Report 23750648 (Version 1)
Quarter: 2024Q2

REPORT INFORMATION
  Report Type: Report from Study
  Country: NL (occurrence: NL)
  Receive Date: 20240417
  Receipt Date: 20240417
  Transmission Date: 20240716
  Serious: Yes (Hospitalization, Other)
  Sender: FDA-Public Use
  Company Number: NL-ABBVIE-5700447

PATIENT
  Sex: Male

DRUGS (6)
  1. VEDOLIZUMAB [Suspect]
     Active Substance: VEDOLIZUMAB
     Indication: Crohn^s disease
     Dosage: UNK
     Route: 065
  2. USTEKINUMAB [Suspect]
     Active Substance: USTEKINUMAB
     Indication: Crohn^s disease
     Dosage: UNK
     Route: 065
  3. AZATHIOPRINE [Suspect]
     Active Substance: AZATHIOPRINE
     Indication: Crohn^s disease
     Dosage: UNK
     Route: 065
  4. THIOGUANINE [Suspect]
     Active Substance: THIOGUANINE
     Indication: Crohn^s disease
     Dosage: UNK
     Route: 065
  5. INFLIXIMAB [Suspect]
     Active Substance: INFLIXIMAB
     Indication: Crohn^s disease
     Dosage: UNK
     Route: 065
  6. HUMIRA [Suspect]
     Active Substance: ADALIMUMAB
     Indication: Crohn^s disease
     Dosage: UNK
     Route: 058

REACTIONS (15)
  - Pyoderma gangrenosum [Unknown]
  - Arthralgia [Not Recovered/Not Resolved]
  - Anal abscess [Unknown]
  - Hepatotoxicity [Not Recovered/Not Resolved]
  - Incarcerated parastomal hernia [Unknown]
  - Anal fistula [Unknown]
  - Stoma site abscess [Unknown]
  - Fistula [Unknown]
  - Drug ineffective [Not Recovered/Not Resolved]
  - Serum sickness [Unknown]
  - Gastrointestinal stoma output increased [Not Recovered/Not Resolved]
  - Eczema [Unknown]
  - Pelvic abscess [Unknown]
  - Crohn^s disease [Unknown]
  - Abdominal wall abscess [Unknown]
